FAERS Safety Report 26185898 (Version 1)
Quarter: 2025Q4

REPORT INFORMATION
  Report Type: Spontaneous
  Country: US (occurrence: US)
  Receive Date: 20251222
  Receipt Date: 20251222
  Transmission Date: 20260117
  Serious: Yes (Hospitalization, Other)
  Sender: CELLTRION
  Company Number: US-CELLTRION INC.-2025US019702

PATIENT

DRUGS (5)
  1. RITUXIMAB [Suspect]
     Active Substance: RITUXIMAB
     Indication: Anti-neutrophil cytoplasmic antibody positive vasculitis
     Dosage: TWO 1000 MG I.V. DOSES SEPARATED BY 2 TO 4 WEEKS FOR INDUCTION
     Route: 042
  2. RITUXIMAB [Suspect]
     Active Substance: RITUXIMAB
     Dosage: SINGLE 1000 MG I.V. DOSE EVERY 4 TO 6 MONTHS TO START
     Route: 042
  3. AZATHIOPRINE [Concomitant]
     Active Substance: AZATHIOPRINE
     Indication: Renal transplant
     Dosage: UNK, MAINTENANCE FOR KIDNEY TRANSPLANT FOR MANY YEARS
  4. MYCOPHENOLATE MOFETIL [Concomitant]
     Active Substance: MYCOPHENOLATE MOFETIL
     Indication: Renal transplant
     Dosage: UNK, MAINTENANCE FOR KIDNEY TRANSPLANT FOR MANY YEARS
  5. PREDNISONE [Concomitant]
     Active Substance: PREDNISONE
     Dosage: LONG-TERM MAINTENANCE STEROIDS PRECEDING OR CONCURRENT WITH RITUXIMAB INITIATION / LONG-TERM MAINTEN

REACTIONS (3)
  - Infection [Unknown]
  - Neutropenia [Unknown]
  - B-lymphocyte count decreased [Unknown]
